FAERS Safety Report 13766366 (Version 1)
Quarter: 2017Q3

REPORT INFORMATION
  Report Type: Spontaneous
  Country: US (occurrence: US)
  Receive Date: 20170718
  Receipt Date: 20170718
  Transmission Date: 20171127
  Serious: Yes (Death, Hospitalization)
  Sender: FDA-Public Use
  Company Number: None

PATIENT
  Age: 75 Year
  Sex: Male

DRUGS (1)
  1. REVLIMID [Suspect]
     Active Substance: LENALIDOMIDE
     Indication: PLASMA CELL MYELOMA
     Route: 048
     Dates: start: 20170428, end: 20170625

REACTIONS (5)
  - Pancytopenia [None]
  - Nephropathy [None]
  - Sepsis [None]
  - Pyrexia [None]
  - Acute kidney injury [None]

NARRATIVE: CASE EVENT DATE: 20170707
